FAERS Safety Report 7864142-0 (Version None)
Quarter: 2011Q4

REPORT INFORMATION
  Report Type: 
  Country: None (occurrence: None)
  Receive Date: 20111028
  Receipt Date: 20111019
  Transmission Date: 20120403
  Serious: Yes (Other)
  Sender: FDA-Public Use
  Company Number: BR-US-EMD SERONO, INC.-7087726

PATIENT
  Sex: Female

DRUGS (7)
  1. BACLOFEN [Concomitant]
  2. PAMELOR [Concomitant]
  3. BROMAZEPAM [Concomitant]
  4. REBIF [Suspect]
     Indication: RELAPSING-REMITTING MULTIPLE SCLEROSIS
     Dates: start: 20061012
  5. DILPRESS [Concomitant]
  6. IBUPROFEN [Concomitant]
  7. MANTIDAN [Concomitant]

REACTIONS (2)
  - OTITIS MEDIA [None]
  - TYMPANIC MEMBRANE PERFORATION [None]
